FAERS Safety Report 10347126 (Version 1)
Quarter: 2014Q3

REPORT INFORMATION
  Report Type: Spontaneous
  Country: GR (occurrence: GR)
  Receive Date: 20140729
  Receipt Date: 20140729
  Transmission Date: 20150326
  Serious: Yes (Life-Threatening, Hospitalization, Disabling)
  Sender: FDA-Public Use
  Company Number: GR-ROCHE-1441652

PATIENT
  Age: 64 Year
  Sex: Male
  Weight: 82 kg

DRUGS (2)
  1. MABTHERA [Suspect]
     Active Substance: RITUXIMAB
     Indication: WALDENSTROM^S MACROGLOBULINAEMIA
     Dosage: ADMINISTERED ON THE FIRST DAY OF THE CYCLE
     Route: 065
     Dates: start: 201308
  2. BENDAMUSTINE [Suspect]
     Active Substance: BENDAMUSTINE
     Indication: WALDENSTROM^S MACROGLOBULINAEMIA
     Dosage: IT WAS ADMINISTERED ON THE FIRST AND SECOND DAY OF THE CYCLE
     Route: 065
     Dates: start: 201308

REACTIONS (1)
  - Bone marrow failure [Not Recovered/Not Resolved]
